FAERS Safety Report 25608641 (Version 2)
Quarter: 2025Q3

REPORT INFORMATION
  Report Type: Spontaneous
  Country: BR (occurrence: BR)
  Receive Date: 20250726
  Receipt Date: 20250805
  Transmission Date: 20251021
  Serious: Yes (Other)
  Sender: AUROBINDO
  Company Number: BR-AUROBINDO-AUR-APL-2025-037596

PATIENT
  Age: 1 Day
  Sex: Male
  Weight: 1.7 kg

DRUGS (5)
  1. AMPICILLIN [Suspect]
     Active Substance: AMPICILLIN
     Indication: Sepsis neonatal
     Dosage: 200 MILLIGRAM/KILOGRAM, ONCE A DAY
     Route: 042
  2. DOPAMINE [Suspect]
     Active Substance: DOPAMINE HYDROCHLORIDE
     Indication: Haemodynamic instability
     Route: 042
  3. TEICOPLANIN [Suspect]
     Active Substance: TEICOPLANIN
     Indication: Sepsis neonatal
     Dosage: 10 MILLIGRAM/KILOGRAM, ONCE A DAY
     Route: 042
  4. AVIBACTAM SODIUM\CEFTAZIDIME [Suspect]
     Active Substance: AVIBACTAM SODIUM\CEFTAZIDIME
     Indication: Sepsis neonatal
     Dosage: 120 MILLIGRAM/KILOGRAM, ONCE A DAY
     Route: 042
  5. POLYMYXIN B [Suspect]
     Active Substance: POLYMYXIN B
     Indication: Sepsis neonatal
     Dosage: 40000 INTERNATIONAL UNIT/KILOGRAM, ONCE A DAY
     Route: 042

REACTIONS (1)
  - Drug ineffective [Unknown]
